FAERS Safety Report 9149582 (Version 1)
Quarter: 2013Q1

REPORT INFORMATION
  Report Type: Spontaneous
  Country: US (occurrence: None)
  Receive Date: 20130228
  Receipt Date: 20130228
  Transmission Date: 20140127
  Serious: Yes (Other)
  Sender: FDA-Public Use
  Company Number: None

PATIENT
  Age: 70 Year
  Sex: Male
  Weight: 79.38 kg

DRUGS (4)
  1. ATORVASTATIN [Suspect]
     Indication: BLOOD CHOLESTEROL ABNORMAL
     Dosage: 40 1 DAILY EVENING
     Dates: start: 20130108, end: 20130202
  2. PRAVASTATIN [Suspect]
     Indication: BLOOD CHOLESTEROL ABNORMAL
     Dates: start: 20130205, end: 20130209
  3. STEROID SHOT [Concomitant]
  4. PREDRISCONE [Concomitant]

REACTIONS (5)
  - Urticaria [None]
  - Local swelling [None]
  - Swelling face [None]
  - Dry skin [None]
  - Pruritus [None]
